FAERS Safety Report 4911089-5 (Version None)
Quarter: 2006Q1

REPORT INFORMATION
  Report Type: 
  Country: None (occurrence: None)
  Receive Date: 20060209
  Receipt Date: 20060127
  Transmission Date: 20060701
  Serious: Yes (Hospitalization)
  Sender: FDA-Public Use
  Company Number: 2006015510

PATIENT
  Age: 81 Year
  Sex: Female

DRUGS (10)
  1. ALDACTONE [Suspect]
     Indication: ILL-DEFINED DISORDER
     Dosage: ORAL
     Route: 048
  2. TRAMADOL (TRAMADOL) [Suspect]
     Indication: ILL-DEFINED DISORDER
     Dosage: 2, ORAL
     Route: 048
     Dates: end: 20041014
  3. BROMAZEPAM (BROMAZEPAM) [Suspect]
     Indication: ILL-DEFINED DISORDER
     Dosage: 6 MG
  4. FUROSEMIDE [Suspect]
     Indication: ESSENTIAL HYPERTENSION
     Dosage: 20 MG, ORAL
     Route: 048
     Dates: end: 20041014
  5. PROZAC [Suspect]
     Indication: DEPRESSION
     Dosage: 20 MG, ORAL
     Route: 048
     Dates: end: 20041016
  6. TEMESTA (LORAZEPAM) [Suspect]
     Indication: ANXIETY
     Dosage: 1 MG, ORAL
     Route: 048
     Dates: end: 20041014
  7. OMEPRAZOLE [Concomitant]
  8. POTASSIUM CHLORIDE [Concomitant]
  9. DISCOTRINE (GLYCERYL TRINITRATE) [Concomitant]
  10. PREVISCAN (FLUINDIONE) [Concomitant]

REACTIONS (11)
  - ARRHYTHMIA [None]
  - ATRIAL FIBRILLATION [None]
  - BLOOD THYROID STIMULATING HORMONE DECREASED [None]
  - BRAIN SCAN ABNORMAL [None]
  - BUNDLE BRANCH BLOCK LEFT [None]
  - CEREBROVASCULAR DISORDER [None]
  - CONFUSIONAL STATE [None]
  - DRUG INTERACTION [None]
  - HEMIPLEGIA [None]
  - HYPONATRAEMIA [None]
  - MECHANICAL COMPLICATION OF IMPLANT [None]
